FAERS Safety Report 14553115 (Version 2)
Quarter: 2018Q2

REPORT INFORMATION
  Report Type: Spontaneous
  Country: US (occurrence: US)
  Receive Date: 20180220
  Receipt Date: 20180413
  Transmission Date: 20180711
  Serious: Yes (Hospitalization, Other)
  Sender: FDA-Public Use
  Company Number: US-ASTELLAS-2018US007557

PATIENT
  Age: 68 Year
  Sex: Male

DRUGS (1)
  1. CRESEMBA [Suspect]
     Active Substance: ISAVUCONAZONIUM SULFATE
     Indication: ASPERGILLUS INFECTION
     Route: 048
     Dates: start: 20171024

REACTIONS (6)
  - Clostridium difficile infection [Unknown]
  - Clostridium difficile infection [Recovered/Resolved]
  - Fall [Recovered/Resolved]
  - Delirium [Not Recovered/Not Resolved]
  - Clostridium difficile infection [Unknown]
  - Back pain [Recovered/Resolved]

NARRATIVE: CASE EVENT DATE: 20171213
